FAERS Safety Report 7480017-3 (Version None)
Quarter: 2011Q2

REPORT INFORMATION
  Report Type: 
  Country: None (occurrence: None)
  Receive Date: 20110516
  Receipt Date: 20110505
  Transmission Date: 20111010
  Serious: No
  Sender: FDA-Public Use
  Company Number: US-BIOGENIDEC-2010BI012011

PATIENT
  Age: 53 Year
  Sex: Female

DRUGS (1)
  1. TYSABRI [Suspect]
     Indication: MULTIPLE SCLEROSIS
     Route: 042
     Dates: start: 20080717

REACTIONS (8)
  - OEDEMA PERIPHERAL [None]
  - SUTURE INSERTION [None]
  - FALL [None]
  - PAIN IN EXTREMITY [None]
  - DYSGRAPHIA [None]
  - CONTUSION [None]
  - IMPAIRED HEALING [None]
  - GAIT DISTURBANCE [None]
